FAERS Safety Report 9605723 (Version 1)
Quarter: 2013Q4

REPORT INFORMATION
  Report Type: Spontaneous
  Country: BR (occurrence: BR)
  Receive Date: 20131008
  Receipt Date: 20131008
  Transmission Date: 20140711
  Serious: Yes (Hospitalization)
  Sender: FDA-Public Use
  Company Number: BR-009507513-1310BRA002851

PATIENT
  Age: 24 Year
  Sex: Female
  Weight: 94 kg

DRUGS (2)
  1. NUVARING [Suspect]
     Indication: CONTRACEPTION
     Dosage: UNK
     Route: 067
     Dates: start: 2002, end: 200602
  2. NUVARING [Suspect]
     Dosage: UNK
     Route: 067
     Dates: start: 200712, end: 20130928

REACTIONS (7)
  - Uterine infection [Recovered/Resolved]
  - Abnormal withdrawal bleeding [Recovered/Resolved]
  - Abnormal withdrawal bleeding [Recovered/Resolved]
  - Abnormal withdrawal bleeding [Recovered/Resolved]
  - Abnormal withdrawal bleeding [Not Recovered/Not Resolved]
  - Hypercholesterolaemia [Not Recovered/Not Resolved]
  - Maternal exposure before pregnancy [Unknown]
